FAERS Safety Report 14239361 (Version 4)
Quarter: 2018Q1

REPORT INFORMATION
  Report Type: Spontaneous
  Country: US (occurrence: US)
  Receive Date: 20171130
  Receipt Date: 20180219
  Transmission Date: 20180508
  Serious: Yes (Disabling)
  Sender: FDA-Public Use
  Company Number: US-PFIZER INC-2017492767

PATIENT
  Age: 73 Year
  Sex: Male
  Weight: 64 kg

DRUGS (20)
  1. XANAX [Concomitant]
     Active Substance: ALPRAZOLAM
     Indication: ANXIETY
     Dosage: 0.25 MG, 2X/DAY (EVERY 12 HOURS)
     Route: 048
  2. SYNTHROID [Concomitant]
     Active Substance: LEVOTHYROXINE SODIUM
     Indication: HYPOTHYROIDISM
     Dosage: 25 UG, 1X/DAY (EVERY MORNING BEFORE BREAKFAST)
     Route: 048
  3. CENTRUM SILVER [Concomitant]
     Active Substance: MINERALS\VITAMINS
     Indication: NUTRITIONAL SUPPLEMENTATION
     Dosage: 1 DF, DAILY
     Route: 048
  4. CARDIA [Concomitant]
     Active Substance: AJMALINE
     Indication: HYPERTENSION
     Dosage: 120 MG, 1X/DAY (ONCE A DAY/HAS BEEN ON IT FOR YEARS)
     Route: 048
  5. NASONEX [Concomitant]
     Active Substance: MOMETASONE FUROATE
     Dosage: 2 DF, AS NEEDED (50 MCG/ACT/2 SPRAYS BY EACH NARE ROUTE)
     Route: 045
  6. ROXICODONE [Concomitant]
     Active Substance: OXYCODONE HYDROCHLORIDE
     Indication: PAIN
     Dosage: 5 MG, AS NEEDED (EVERY 4 (FOUR) HOURS/DO NOT EXCEED A DAILY DOSE OF 30 MG)
     Route: 048
  7. COMPAZINE [Concomitant]
     Active Substance: PROCHLORPERAZINE MALEATE
     Indication: NAUSEA
     Dosage: 10 MG, 4X/DAY (EVERY 6 HOURS)
     Route: 048
  8. LEXAPRO [Concomitant]
     Active Substance: ESCITALOPRAM OXALATE
     Dosage: 20 MG, DAILY
     Route: 048
  9. PROZAC [Concomitant]
     Active Substance: FLUOXETINE HYDROCHLORIDE
     Indication: DEPRESSION
     Dosage: 20 MG, DAILY
     Route: 048
  10. CATAPRES [Concomitant]
     Active Substance: CLONIDINE HYDROCHLORIDE
     Indication: HYPERTENSION
     Dosage: 0.2 MG, 2X/DAY
     Route: 048
  11. TRICOR [Concomitant]
     Active Substance: FENOFIBRATE
     Indication: BLOOD CHOLESTEROL INCREASED
     Dosage: 145 MG, DAILY
     Route: 048
  12. PERICOLACE [Concomitant]
     Dosage: 1 DF, DAILY [SENNA 8.6 MG/DOCUSATE SODIUM 50 MG]
     Route: 048
  13. SONATA [Concomitant]
     Active Substance: ZALEPLON
     Dosage: 5 MG, 1X/DAY (EVERY NIGHT AT BEDTIME)
     Route: 048
  14. CITRUCEL [Concomitant]
     Active Substance: METHYLCELLULOSE (4000 MPA.S)
     Dosage: 1 DF, DAILY (AS DIRECTED)
     Route: 048
  15. XANAX [Concomitant]
     Active Substance: ALPRAZOLAM
     Dosage: 1 DF, AS NEEDED (1 TABLET BY MOUTH EVERY 12 HOURS AS NEEDED )
     Route: 048
  16. NORVASC [Concomitant]
     Active Substance: AMLODIPINE BESYLATE
     Indication: HYPERTENSION
     Dosage: 10 MG, DAILY
     Route: 048
  17. TRICOR [Concomitant]
     Active Substance: FENOFIBRATE
     Dosage: 145 MG, 1X/DAY (ONCE A DAY)
     Route: 048
  18. SYNTHROID [Concomitant]
     Active Substance: LEVOTHYROXINE SODIUM
     Dosage: 25 MG, 1X/DAY
     Route: 048
  19. INLYTA [Suspect]
     Active Substance: AXITINIB
     Indication: RENAL CANCER
     Dosage: 5 MG, 2X/DAY (TAKE 1 TABLET)
     Route: 048
     Dates: start: 20171003, end: 2017
  20. CARTIA XT [Concomitant]
     Active Substance: DILTIAZEM HYDROCHLORIDE
     Dosage: 120 MG, DAILY
     Route: 048

REACTIONS (9)
  - Feeling abnormal [Unknown]
  - Weight decreased [Recovering/Resolving]
  - Rash [Recovered/Resolved]
  - Ulcer [Recovering/Resolving]
  - Drug hypersensitivity [Unknown]
  - Blister [Unknown]
  - Fatigue [Unknown]
  - Abnormal behaviour [Unknown]
  - Confusional state [Unknown]

NARRATIVE: CASE EVENT DATE: 2017
